FAERS Safety Report 14114263 (Version 2)
Quarter: 2017Q4

REPORT INFORMATION
  Report Type: Spontaneous
  Country: CA (occurrence: CA)
  Receive Date: 20171023
  Receipt Date: 20171124
  Transmission Date: 20180321
  Serious: Yes (Other)
  Sender: FDA-Public Use
  Company Number: CA-ORION CORPORATION ORION PHARMA-TREX2017-3177

PATIENT
  Age: 60 Year
  Sex: Female

DRUGS (1)
  1. METHOTREXATE (TRADE NAME UNKNOWN) [Suspect]
     Active Substance: METHOTREXATE
     Indication: RHEUMATOID ARTHRITIS
     Route: 065
     Dates: start: 2017, end: 201706

REACTIONS (6)
  - Pain [Unknown]
  - Inflammation [Unknown]
  - Pneumonitis [Unknown]
  - Mass [Unknown]
  - Interstitial lung disease [Unknown]
  - Nodule [Unknown]

NARRATIVE: CASE EVENT DATE: 2017
